FAERS Safety Report 15729148 (Version 2)
Quarter: 2019Q1

REPORT INFORMATION
  Report Type: Spontaneous
  Country: FR (occurrence: FR)
  Receive Date: 20181217
  Receipt Date: 20190128
  Transmission Date: 20190417
  Serious: Yes (Other)
  Sender: FDA-Public Use
  Company Number: FR-009507513-1812FRA005397

PATIENT
  Age: 70 Year
  Sex: Male
  Weight: 54 kg

DRUGS (3)
  1. INVANZ [Suspect]
     Active Substance: ERTAPENEM SODIUM
     Dosage: 1 GRAM,/ DAY
     Dates: start: 20181212, end: 20190115
  2. INVANZ [Suspect]
     Active Substance: ERTAPENEM SODIUM
     Dosage: 1 GRAM, QD
     Route: 058
     Dates: start: 20181210, end: 20181211
  3. INVANZ [Suspect]
     Active Substance: ERTAPENEM SODIUM
     Indication: OSTEITIS
     Dosage: 1 GRAM, QD
     Dates: start: 20181109, end: 20181209

REACTIONS (5)
  - Off label use [Unknown]
  - Poor venous access [Unknown]
  - Incorrect route of product administration [Unknown]
  - Malnutrition [Unknown]
  - Cachexia [Unknown]

NARRATIVE: CASE EVENT DATE: 2018
